FAERS Safety Report 24819002 (Version 2)
Quarter: 2025Q3

REPORT INFORMATION
  Report Type: Spontaneous
  Country: GB (occurrence: GB)
  Receive Date: 20250108
  Receipt Date: 20250803
  Transmission Date: 20251020
  Serious: Yes (Other)
  Sender: ALEXION PHARMACEUTICALS
  Company Number: GB-MHRA-EMIS-12886-0fccd19a-2e17-4cb2-9731-6eb6f1b3be7b

PATIENT
  Age: 62 Year
  Sex: Male
  Weight: 93 kg

DRUGS (6)
  1. DAPAGLIFLOZIN [Suspect]
     Active Substance: DAPAGLIFLOZIN
     Route: 065
     Dates: start: 20241028, end: 20241213
  2. CLOTRIMAZOLE [Concomitant]
     Active Substance: CLOTRIMAZOLE
     Route: 065
  3. SPIKEVAX [Concomitant]
     Active Substance: CX-046684
  4. HYDROCORTISONE [Concomitant]
     Active Substance: HYDROCORTISONE
     Route: 065
  5. HYDROCORTISONE [Concomitant]
     Active Substance: HYDROCORTISONE
     Route: 065
  6. PARAFFIN [Concomitant]
     Active Substance: PARAFFIN
     Route: 065

REACTIONS (1)
  - Dermatitis allergic [Recovering/Resolving]

NARRATIVE: CASE EVENT DATE: 20241218
